FAERS Safety Report 6045423-2 (Version None)
Quarter: 2009Q1

REPORT INFORMATION
  Report Type: 
  Country: None (occurrence: None)
  Receive Date: 20090116
  Receipt Date: 20090116
  Transmission Date: 20090719
  Serious: Yes (Life-Threatening)
  Sender: FDA-Public Use
  Company Number: None

PATIENT
  Age: 57 Year
  Sex: Female
  Weight: 72.1219 kg

DRUGS (1)
  1. PROVENTIL-HFA [Suspect]
     Indication: ASTHMA
     Dosage: 2 INHALATIONS AS NEEDED INHAL
     Route: 055
     Dates: start: 20090101, end: 20090115

REACTIONS (3)
  - DRUG INEFFECTIVE [None]
  - PEAK EXPIRATORY FLOW RATE DECREASED [None]
  - PRODUCT QUALITY ISSUE [None]
